FAERS Safety Report 4396635-5 (Version None)
Quarter: 2004Q3

REPORT INFORMATION
  Report Type: 
  Country: None (occurrence: None)
  Receive Date: 20040709
  Receipt Date: 20040630
  Transmission Date: 20050211
  Serious: Yes (Other)
  Sender: FDA-Public Use
  Company Number: 2004-06-0164

PATIENT
  Age: 56 Year
  Sex: Male
  Weight: 43 kg

DRUGS (7)
  1. INTRON A [Suspect]
     Indication: RENAL CELL CARCINOMA STAGE UNSPECIFIED
     Dosage: 3-6 MIU TIW* INTRAMUSCULAR
     Route: 030
     Dates: start: 20040216, end: 20040512
  2. IOPAMIRON INJECTABLE [Concomitant]
  3. CYANOCOBALAMIN [Concomitant]
  4. LOXONIN TABLETS [Concomitant]
  5. DOGMATYL TABLETS [Concomitant]
  6. ZONISAMIDE TABLETS [Concomitant]
  7. RADIATION THERAPY [Concomitant]

REACTIONS (3)
  - EOSINOPHIL COUNT INCREASED [None]
  - RASH PRURITIC [None]
  - TOXIC SKIN ERUPTION [None]
